FAERS Safety Report 13859516 (Version 2)
Quarter: 2017Q3

REPORT INFORMATION
  Report Type: Spontaneous
  Country: US (occurrence: US)
  Receive Date: 20170811
  Receipt Date: 20170821
  Transmission Date: 20171127
  Serious: Yes (Death)
  Sender: FDA-Public Use
  Company Number: US-PFIZER INC-2017022146

PATIENT
  Age: 68 Year
  Sex: Female
  Weight: 49.89 kg

DRUGS (6)
  1. TURMERIC [Concomitant]
     Active Substance: HERBALS\TURMERIC
     Indication: BREAST CANCER
     Dosage: UNK
  2. VITAMIN D3 [Concomitant]
     Active Substance: CHOLECALCIFEROL
     Indication: BREAST CANCER
     Dosage: 2000 IU, 3X/DAY(THINKS SHE WAS TAKING 3 TIMES PER DAY)
     Route: 048
  3. FASLODEX [Concomitant]
     Active Substance: FULVESTRANT
     Indication: HORMONE THERAPY
     Dosage: UNK UNK, MONTHLY, (SHOT ONCE PER MONTH)
     Dates: start: 201610
  4. MAGNESIUM CITRATE. [Concomitant]
     Active Substance: MAGNESIUM CITRATE
     Indication: BREAST CANCER
     Dosage: 200 MG, 3X/DAY
     Route: 048
  5. VITAMIN C [Concomitant]
     Active Substance: ASCORBIC ACID
     Indication: BREAST CANCER
     Dosage: 1000 IU, 3X/DAY (THINKS SHE WAS TAKING MAY BE THREE TIMES PER DAY)
     Route: 048
  6. IBRANCE [Suspect]
     Active Substance: PALBOCICLIB
     Indication: BREAST CANCER METASTATIC
     Dosage: 125 MG, CYCLIC, (ONCE DAILY 21 DAYS AND OFF 7 DAYS)
     Route: 048
     Dates: start: 2016

REACTIONS (9)
  - Condition aggravated [Unknown]
  - Weight decreased [Unknown]
  - Neoplasm progression [Fatal]
  - Amnesia [Unknown]
  - Tumour exudation [Unknown]
  - Wound complication [Unknown]
  - Pain [Unknown]
  - Skin odour abnormal [Unknown]
  - Decreased appetite [Unknown]

NARRATIVE: CASE EVENT DATE: 201611
